FAERS Safety Report 10659747 (Version 3)
Quarter: 2015Q1

REPORT INFORMATION
  Report Type: Spontaneous
  Country: JP (occurrence: JP)
  Receive Date: 20141217
  Receipt Date: 20150116
  Transmission Date: 20150720
  Serious: Yes (Hospitalization, Other)
  Sender: FDA-Public Use
  Company Number: JP-PFIZER INC-2014343943

PATIENT
  Age: 50 Year
  Sex: Male

DRUGS (1)
  1. VIAGRA [Suspect]
     Active Substance: SILDENAFIL CITRATE
     Dosage: UNK
     Route: 048

REACTIONS (4)
  - Mallory-Weiss syndrome [Unknown]
  - Retinal haemorrhage [Unknown]
  - Hepatic cirrhosis [Unknown]
  - Varices oesophageal [Unknown]

NARRATIVE: CASE EVENT DATE: 20141219
